FAERS Safety Report 5446668-2 (Version None)
Quarter: 2007Q3

REPORT INFORMATION
  Report Type: 
  Country: None (occurrence: None)
  Receive Date: 20070907
  Receipt Date: 20070830
  Transmission Date: 20080115
  Serious: Yes (Other)
  Sender: FDA-Public Use
  Company Number: DE-SHR-DE-2007-027292

PATIENT
  Sex: Female

DRUGS (3)
  1. MIRENA [Suspect]
     Dosage: 20 A?G, CONT
     Route: 015
     Dates: start: 20061001
  2. MARCUMAR [Concomitant]
     Indication: ANTICOAGULANT THERAPY
  3. FRAXIPARIN [Concomitant]

REACTIONS (3)
  - PELVIC VENOUS THROMBOSIS [None]
  - SENSATION OF FOREIGN BODY [None]
  - THROMBOSIS [None]
